FAERS Safety Report 14500127 (Version 1)
Quarter: 2018Q1

REPORT INFORMATION
  Report Type: Not Available
  Country: US (occurrence: US)
  Receive Date: 20180207
  Receipt Date: 20180207
  Transmission Date: 20180509
  Serious: No
  Sender: FDA-Public Use
  Company Number: US-FOUNDATIONCONSUMERHC-2017-US-014568

PATIENT
  Age: 18 Year
  Sex: Female

DRUGS (1)
  1. PLAN B ONE-STEP [Suspect]
     Active Substance: LEVONORGESTREL
     Dosage: 1 TABLET
     Route: 048
     Dates: start: 20171201, end: 20171202

REACTIONS (9)
  - Feeling hot [Unknown]
  - Headache [Unknown]
  - Pyrexia [Unknown]
  - Dysphonia [Unknown]
  - Chills [Unknown]
  - Nausea [Unknown]
  - Tonsillar hypertrophy [Unknown]
  - Abdominal discomfort [Unknown]
  - Dizziness [Unknown]

NARRATIVE: CASE EVENT DATE: 20171203
